FAERS Safety Report 16869608 (Version 4)
Quarter: 2020Q1

REPORT INFORMATION
  Report Type: Spontaneous
  Country: GB (occurrence: GB)
  Receive Date: 20190930
  Receipt Date: 20200204
  Transmission Date: 20200409
  Serious: Yes (Other)
  Sender: FDA-Public Use
  Company Number: GB-MYLANLABS-2019M1090396

PATIENT
  Age: 42 Year
  Sex: Female

DRUGS (1)
  1. CLOZARIL [Suspect]
     Active Substance: CLOZAPINE
     Indication: SCHIZOPHRENIA
     Dosage: UNK
     Route: 048
     Dates: start: 20181221

REACTIONS (8)
  - Mean cell haemoglobin decreased [Not Recovered/Not Resolved]
  - Red cell distribution width increased [Unknown]
  - White blood cell count decreased [Recovered/Resolved]
  - Mean cell volume decreased [Recovering/Resolving]
  - Platelet count increased [Not Recovered/Not Resolved]
  - Haematocrit decreased [Recovering/Resolving]
  - Haemoglobin decreased [Recovering/Resolving]
  - Neutropenia [Recovered/Resolved]

NARRATIVE: CASE EVENT DATE: 20190923
